FAERS Safety Report 26006457 (Version 1)
Quarter: 2025Q4

REPORT INFORMATION
  Report Type: Spontaneous
  Country: US (occurrence: None)
  Receive Date: 20251105
  Receipt Date: 20251105
  Transmission Date: 20260117
  Serious: Yes (Disabling)
  Sender: FDA-CTU
  Company Number: None

PATIENT
  Age: 37 Year
  Sex: Female
  Weight: 63 kg

DRUGS (4)
  1. UBRELVY [Suspect]
     Active Substance: UBROGEPANT
     Indication: Migraine
     Dosage: OTHER QUANTITY : 1 TABLET(S);?FREQUENCY : AS NEEDED;?
     Route: 048
     Dates: start: 20230101, end: 20251103
  2. UBRELVY [Concomitant]
     Active Substance: UBROGEPANT
  3. VITAMIN D [Concomitant]
     Active Substance: VITAMIN D NOS
  4. b12 [Concomitant]

REACTIONS (2)
  - Raynaud^s phenomenon [None]
  - Product communication issue [None]

NARRATIVE: CASE EVENT DATE: 20251103
